FAERS Safety Report 9263779 (Version 1)
Quarter: 2013Q2

REPORT INFORMATION
  Report Type: Spontaneous
  Country: US (occurrence: None)
  Receive Date: 20130429
  Receipt Date: 20130429
  Transmission Date: 20140414
  Serious: Yes (Life-Threatening)
  Sender: FDA-Public Use
  Company Number: None

PATIENT
  Age: 71 Year
  Sex: Male
  Weight: 114.76 kg

DRUGS (2)
  1. STIVARGA [Suspect]
     Indication: GASTROINTESTINAL STROMAL TUMOUR
     Route: 048
     Dates: start: 20130202, end: 20130426
  2. STIVARGA [Suspect]
     Indication: METASTASIS
     Route: 048
     Dates: start: 20130202, end: 20130426

REACTIONS (7)
  - Flatulence [None]
  - Diarrhoea [None]
  - Overdose [None]
  - Food interaction [None]
  - Gastric disorder [None]
  - Dehydration [None]
  - Renal impairment [None]
